FAERS Safety Report 9540631 (Version 3)
Quarter: 2013Q4

REPORT INFORMATION
  Report Type: Spontaneous
  Country: US (occurrence: US)
  Receive Date: 20130920
  Receipt Date: 20131009
  Transmission Date: 20140711
  Serious: Yes (Other)
  Sender: FDA-Public Use
  Company Number: ALCN2013US004691

PATIENT
  Sex: 0

DRUGS (7)
  1. PILOCARPINE HCL [Suspect]
     Indication: GLAUCOMA
     Dosage: 1 GTT, QID
     Route: 047
     Dates: start: 20130902, end: 201309
  2. PILOCARPINE HCL [Suspect]
     Dosage: 1 GTT, QID
     Route: 047
     Dates: start: 201302, end: 201309
  3. PILOCARPINE HCL [Suspect]
     Dosage: 1 GTT, BID
     Route: 047
     Dates: start: 201309
  4. PILOCARPINE HCL [Suspect]
     Dosage: 1 GTT, QD
     Route: 047
     Dates: start: 201309
  5. COMBIGAN [Concomitant]
     Indication: GLAUCOMA
     Dosage: 1 DF, BID
     Route: 047
  6. LUMIGAN [Concomitant]
     Indication: GLAUCOMA
     Dosage: 1 DF, QD
     Route: 047
  7. DIOVAN [Concomitant]
     Indication: BLOOD PRESSURE INCREASED
     Dosage: 1 DF, QD
     Route: 048
     Dates: start: 2010

REACTIONS (2)
  - Hallucination, visual [Not Recovered/Not Resolved]
  - Xanthopsia [Unknown]
